FAERS Safety Report 16285952 (Version 1)
Quarter: 2019Q2

REPORT INFORMATION
  Report Type: Spontaneous
  Country: US (occurrence: US)
  Receive Date: 20190402
  Receipt Date: 20190402
  Transmission Date: 20190711
  Serious: Yes (Death)
  Sender: FDA-Public Use
  Company Number: None

PATIENT
  Age: 65 Year
  Sex: Male

DRUGS (1)
  1. OPDIVO [Suspect]
     Active Substance: NIVOLUMAB
     Indication: SMALL CELL CARCINOMA
     Route: 042
     Dates: start: 20190304

REACTIONS (8)
  - Coronary artery disease [None]
  - Polymyositis [None]
  - Back pain [None]
  - Atrioventricular block [None]
  - Dizziness [None]
  - Influenza like illness [None]
  - Multiple organ dysfunction syndrome [None]
  - Balance disorder [None]

NARRATIVE: CASE EVENT DATE: 20190322
